FAERS Safety Report 18063672 (Version 1)
Quarter: 2020Q3

REPORT INFORMATION
  Report Type: Spontaneous
  Country: US (occurrence: US)
  Receive Date: 20200723
  Receipt Date: 20200723
  Transmission Date: 20201103
  Serious: No
  Sender: FDA-Public Use
  Company Number: US-AMGEN-USASP2020117649

PATIENT
  Age: 47 Year
  Sex: Male

DRUGS (7)
  1. OTEZLA [Suspect]
     Active Substance: APREMILAST
     Indication: PSORIATIC ARTHROPATHY
     Dosage: 30 MILLIGRAM, BID
     Route: 048
     Dates: start: 20200207
  2. AMLODIPINE [Concomitant]
     Active Substance: AMLODIPINE BESYLATE
  3. DULOXETINE. [Concomitant]
     Active Substance: DULOXETINE
  4. FUROSEMIDE. [Concomitant]
     Active Substance: FUROSEMIDE
  5. PREGABALIN. [Concomitant]
     Active Substance: PREGABALIN
  6. ACETAZOLAMID [Concomitant]
     Active Substance: ACETAZOLAMIDE
  7. SULFASALAZINE DELAYED?RELEASE [Concomitant]
     Active Substance: SULFASALAZINE

REACTIONS (1)
  - Headache [Not Recovered/Not Resolved]

NARRATIVE: CASE EVENT DATE: 2020
